FAERS Safety Report 6722767-X (Version None)
Quarter: 2010Q2

REPORT INFORMATION
  Report Type: 
  Country: None (occurrence: None)
  Receive Date: 20100511
  Receipt Date: 20100429
  Transmission Date: 20101027
  Serious: Yes (Death, Hospitalization, Other)
  Sender: FDA-Public Use
  Company Number: 2010-1496

PATIENT
  Age: 73 Year
  Sex: Male

DRUGS (1)
  1. APO-GO AMPOULES (APO-GO) (APOMORPHINE HYDROCHLORIDE) (APOMORPHINE HYDR [Suspect]
     Indication: PARKINSON'S DISEASE
     Dosage: 97.5 MG (6.5 MG,CONTINUOUS FROM 07.00 AM TO 10.00 PM),SUBCUTANEOUS
     Route: 058
     Dates: start: 20080515

REACTIONS (2)
  - METASTASES TO LIVER [None]
  - METASTASES TO PANCREAS [None]
